FAERS Safety Report 12627792 (Version 1)
Quarter: 2016Q3

REPORT INFORMATION
  Report Type: Spontaneous
  Country: NP (occurrence: NP)
  Receive Date: 20160806
  Receipt Date: 20160806
  Transmission Date: 20161109
  Serious: Yes (Other)
  Sender: FDA-Public Use
  Company Number: NP-MACLEODS PHARMACEUTICALS US LTD-MAC2016002965

PATIENT

DRUGS (3)
  1. LOSARTAN POTASSIUM. [Suspect]
     Active Substance: LOSARTAN POTASSIUM
     Indication: PRODUCT USED FOR UNKNOWN INDICATION
     Dosage: UNK
     Route: 048
  2. VANCOMYCIN [Suspect]
     Active Substance: VANCOMYCIN
     Indication: ANTIBIOTIC THERAPY
     Dosage: UNK
     Route: 033
  3. GENTAMICIN. [Concomitant]
     Active Substance: GENTAMICIN
     Indication: ANTIBIOTIC THERAPY
     Dosage: UNK
     Route: 033

REACTIONS (3)
  - Noninfectious peritonitis [Recovered/Resolved]
  - Type IV hypersensitivity reaction [Recovered/Resolved]
  - Peritoneal cloudy effluent [Recovered/Resolved]
